FAERS Safety Report 5225503-1 (Version None)
Quarter: 2007Q1

REPORT INFORMATION
  Report Type: 
  Country: None (occurrence: None)
  Receive Date: 20070131
  Receipt Date: 20070124
  Transmission Date: 20070707
  Serious: Yes (Other)
  Sender: FDA-Public Use
  Company Number: US-PFIZER INC-2007003455

PATIENT
  Sex: Female
  Weight: 58.5 kg

DRUGS (4)
  1. CHANTIX [Suspect]
     Indication: EX-SMOKER
  2. XANAX [Suspect]
     Indication: ANXIETY
     Dosage: FREQ:WHEN NEEDED
  3. NEXIUM [Concomitant]
  4. BUSPAR [Concomitant]

REACTIONS (9)
  - AGITATION [None]
  - ANXIETY [None]
  - CONSTIPATION [None]
  - FLATULENCE [None]
  - HYPERAESTHESIA [None]
  - HYPOAESTHESIA FACIAL [None]
  - NAUSEA [None]
  - PHARYNGEAL HYPOAESTHESIA [None]
  - PHARYNGOLARYNGEAL PAIN [None]
